FAERS Safety Report 7605056-0 (Version None)
Quarter: 2011Q3

REPORT INFORMATION
  Report Type: 
  Country: None (occurrence: None)
  Receive Date: 20110713
  Receipt Date: 20080828
  Transmission Date: 20111222
  Serious: Yes (Hospitalization, Other)
  Sender: FDA-Public Use
  Company Number: US-BAYER-201031088NA

PATIENT
  Age: 58 Year
  Sex: Male
  Weight: 105 kg

DRUGS (17)
  1. ALLOPURINOL [Concomitant]
     Dosage: 400 MG, QD
     Route: 048
  2. TRASYLOL [Suspect]
     Indication: CORONARY ARTERY BYPASS
     Dosage: PUMP PRIME
     Dates: start: 20041111, end: 20041111
  3. HYDROCHLOROTHIAZIDE [Concomitant]
     Dosage: 25 MG, QD
     Route: 048
  4. HEPARIN [Concomitant]
     Dosage: UNK
     Route: 042
     Dates: start: 20041111, end: 20041111
  5. PROTAMINE SULFATE [Concomitant]
     Dosage: 25 MG, UNK
     Route: 042
     Dates: start: 20041111, end: 20041111
  6. OMNIPAQUE 140 [Concomitant]
     Indication: CATHETERISATION CARDIAC
     Dosage: 150 ML, UNK
     Dates: start: 20041105
  7. TRASYLOL [Suspect]
     Dosage: 25ML/HR
     Route: 042
     Dates: start: 20041111, end: 20041111
  8. TRASYLOL [Suspect]
     Dosage: 100 ML, ONCE
     Route: 042
     Dates: start: 20041111, end: 20041111
  9. AVANDIA [Concomitant]
     Dosage: 8 MG, QD
     Route: 048
  10. DYAZIDE [Concomitant]
     Dosage: 50/25
     Route: 048
  11. LISINOPRIL [Concomitant]
     Dosage: 20 MG, QD
     Route: 048
  12. ACETYLSALICYLIC ACID SRT [Concomitant]
     Dosage: 81 MG, QD
     Route: 048
  13. VERSED [Concomitant]
     Dosage: UNK
     Route: 042
     Dates: start: 20041111, end: 20041111
  14. ANCEF [Concomitant]
     Dosage: 1 G, UNK
     Route: 042
     Dates: start: 20041111, end: 20041111
  15. LASIX [Concomitant]
     Dosage: 20 MG, UNK
     Route: 042
     Dates: start: 20041111, end: 20041111
  16. VIAGRA [Concomitant]
     Dosage: 100 MG, PRN
     Route: 048
  17. PRAVACHOL [Concomitant]
     Dosage: 20 MG, QD
     Route: 048

REACTIONS (11)
  - PAIN [None]
  - STRESS [None]
  - GAIT DISTURBANCE [None]
  - FEAR [None]
  - BALANCE DISORDER [None]
  - VISUAL IMPAIRMENT [None]
  - UNEVALUABLE EVENT [None]
  - EMOTIONAL DISTRESS [None]
  - ANXIETY [None]
  - CEREBROVASCULAR ACCIDENT [None]
  - AMNESIA [None]
